FAERS Safety Report 7667895-X (Version None)
Quarter: 2011Q3

REPORT INFORMATION
  Report Type: 
  Country: None (occurrence: None)
  Receive Date: 20110808
  Receipt Date: 20110804
  Transmission Date: 20111222
  Serious: Yes (Other)
  Sender: FDA-Public Use
  Company Number: DE-BRISTOL-MYERS SQUIBB COMPANY-15948680

PATIENT
  Age: 17 Year
  Sex: Male

DRUGS (2)
  1. ABILIFY [Suspect]
     Indication: MANIA
  2. ABILIFY [Suspect]
     Indication: PSYCHOTIC DISORDER

REACTIONS (2)
  - SEBACEOUS GLANDS OVERACTIVITY [None]
  - FATIGUE [None]
